FAERS Safety Report 22593161 (Version 4)
Quarter: 2024Q1

REPORT INFORMATION
  Report Type: Spontaneous
  Country: US (occurrence: US)
  Receive Date: 20230613
  Receipt Date: 20240213
  Transmission Date: 20240410
  Serious: Yes (Hospitalization, Other)
  Sender: FDA-Public Use
  Company Number: US-NOVOPROD-1075482

PATIENT
  Age: 72 Year
  Sex: Male

DRUGS (5)
  1. OZEMPIC [Suspect]
     Active Substance: SEMAGLUTIDE
     Dosage: 1 MG, QW
     Route: 058
  2. OZEMPIC [Suspect]
     Active Substance: SEMAGLUTIDE
     Indication: Type 2 diabetes mellitus
     Dosage: 0.25 MG, QW
     Route: 058
     Dates: start: 202210
  3. OZEMPIC [Suspect]
     Active Substance: SEMAGLUTIDE
     Dosage: 0.25 QW
     Route: 058
  4. GLIMEPIRIDE A [Concomitant]
     Indication: Type 2 diabetes mellitus
     Dosage: UNK UNK, QD
     Route: 048
  5. ENBREL [Concomitant]
     Active Substance: ETANERCEPT
     Indication: Rheumatoid arthritis
     Dosage: UNK

REACTIONS (20)
  - Haematochezia [Unknown]
  - Vagus nerve disorder [Unknown]
  - Vagus nerve disorder [Unknown]
  - Loss of consciousness [Unknown]
  - Anal incontinence [Unknown]
  - Vomiting [Unknown]
  - Libido decreased [Unknown]
  - Temperature intolerance [Unknown]
  - Sneezing [Unknown]
  - Ageusia [Unknown]
  - Feeding disorder [Unknown]
  - Asthenia [Not Recovered/Not Resolved]
  - Gait inability [Recovered/Resolved]
  - Presyncope [Unknown]
  - Pallor [Unknown]
  - Malaise [Unknown]
  - Faeces hard [Unknown]
  - Vertigo [Unknown]
  - Presyncope [Unknown]
  - Off label use [Unknown]

NARRATIVE: CASE EVENT DATE: 20220101
